FAERS Safety Report 20874876 (Version 6)
Quarter: 2022Q4

REPORT INFORMATION
  Report Type: Report from Study
  Country: US (occurrence: US)
  Receive Date: 20220526
  Receipt Date: 20221024
  Transmission Date: 20230112
  Serious: Yes (Hospitalization, Other)
  Sender: FDA-Public Use
  Company Number: US-NOVARTISTESTPH-NVSC2022US120746

PATIENT
  Sex: Male

DRUGS (1)
  1. ENTRESTO [Suspect]
     Active Substance: SACUBITRIL\VALSARTAN
     Indication: Cardiac failure
     Dosage: UNK, BID
     Route: 048
     Dates: start: 20220416

REACTIONS (6)
  - Diarrhoea [Unknown]
  - Dehydration [Unknown]
  - Renal impairment [Unknown]
  - Abnormal weight gain [Recovering/Resolving]
  - Cardiac disorder [Unknown]
  - Weight decreased [Unknown]
